FAERS Safety Report 8905209 (Version 1)
Quarter: 2012Q4

REPORT INFORMATION
  Report Type: 
  Country: CA (occurrence: CA)
  Receive Date: 20121112
  Receipt Date: 20121112
  Transmission Date: 20130627
  Serious: Yes (Other)
  Sender: FDA-Public Use
  Company Number: PHHY2012CA103608

PATIENT
  Sex: Female

DRUGS (1)
  1. ZOMETA [Suspect]
     Indication: BREAST CANCER
     Dosage: 4 mg, every 6 months
     Route: 042
     Dates: start: 20101104

REACTIONS (3)
  - Lower respiratory tract infection [Unknown]
  - Eye infection viral [Unknown]
  - Influenza [Unknown]
